FAERS Safety Report 24743512 (Version 1)
Quarter: 2024Q4

REPORT INFORMATION
  Report Type: Spontaneous
  Country: CN (occurrence: CN)
  Receive Date: 20241217
  Receipt Date: 20241217
  Transmission Date: 20250115
  Serious: Yes (Hospitalization, Other)
  Sender: BAXTER
  Company Number: None

PATIENT
  Age: 8 Year
  Sex: Male
  Weight: 42.2 kg

DRUGS (10)
  1. CYCLOPHOSPHAMIDE [Suspect]
     Active Substance: CYCLOPHOSPHAMIDE
     Indication: Neoplasm malignant
     Dosage: 2.3 G, ONE TIME IN ONE DAY, DILUTED WITH 500 ML OF GLUCOSE AND SODIUM CHLORIDE (4:1)
     Route: 041
     Dates: start: 20240925, end: 20240926
  2. CYCLOPHOSPHAMIDE [Suspect]
     Active Substance: CYCLOPHOSPHAMIDE
     Indication: Chemotherapy
  3. SODIUM CHLORIDE [Suspect]
     Active Substance: SODIUM CHLORIDE
     Indication: Medication dilution
     Dosage: (0.9%) 50 ML, ONE TIME IN ONE DAY, USED TO DILUTE 3.9 MG OF VINDESINE SULFATE
     Route: 041
     Dates: start: 20240925, end: 20240925
  4. SODIUM CHLORIDE [Suspect]
     Active Substance: SODIUM CHLORIDE
     Dosage: 500 ML SODIUM CHLORIDE, 500 ML GLUCOSE (1:4), ONE TIME IN ONE DAY, USED TO DILUTE 2.3 G OF CYCLOPHOS
     Route: 041
     Dates: start: 20240925, end: 20240926
  5. SODIUM CHLORIDE [Suspect]
     Active Substance: SODIUM CHLORIDE
     Dosage: (0.9%) 250 ML, ONE TIME IN ONE DAY, USED TO DILUTE 32 MG OF EPIRUBICIN HYDROCHLORIDE
     Route: 041
     Dates: start: 20240925, end: 20240927
  6. ANHYDROUS DEXTROSE [Suspect]
     Active Substance: ANHYDROUS DEXTROSE
     Indication: Medication dilution
     Dosage: 500 ML GLUCOSE, 500 ML SODIUM CHLORIDE (4:1), ONE TIME IN ONE DAY, USED TO DILUTE 2.3 G OF CYCLOPHOS
     Route: 041
     Dates: start: 20240925, end: 20240926
  7. EPIRUBICIN HYDROCHLORIDE [Suspect]
     Active Substance: EPIRUBICIN HYDROCHLORIDE
     Indication: Neoplasm malignant
     Dosage: 32 MG, ONE TIME IN ONE DAY, DILUTED WITH 250 ML OF 0.9% SODIUM CHLORIDE
     Route: 041
     Dates: start: 20240925, end: 20240927
  8. EPIRUBICIN HYDROCHLORIDE [Suspect]
     Active Substance: EPIRUBICIN HYDROCHLORIDE
     Indication: Chemotherapy
  9. VINDESINE SULFATE [Suspect]
     Active Substance: VINDESINE SULFATE
     Indication: Neoplasm malignant
     Dosage: 3.9 MG, ONE TIME IN ONE DAY, DILUTED WITH 50 ML OF 0.9% SODIUM CHLORIDE
     Route: 041
     Dates: start: 20240925, end: 20240925
  10. VINDESINE SULFATE [Suspect]
     Active Substance: VINDESINE SULFATE
     Indication: Chemotherapy

REACTIONS (1)
  - Myelosuppression [Recovering/Resolving]

NARRATIVE: CASE EVENT DATE: 20241004
